FAERS Safety Report 15808618 (Version 1)
Quarter: 2019Q1

REPORT INFORMATION
  Report Type: Spontaneous
  Country: US (occurrence: US)
  Receive Date: 20190110
  Receipt Date: 20190110
  Transmission Date: 20190417
  Serious: No
  Sender: FDA-Public Use
  Company Number: US-SA-2019SA006375

PATIENT
  Sex: Female

DRUGS (6)
  1. ZANTAC [Suspect]
     Active Substance: RANITIDINE HYDROCHLORIDE
     Indication: DYSPEPSIA
  2. MAALOX [ALGELDRATE;MAGNESIUM HYDROXIDE] [Suspect]
     Active Substance: ALGELDRATE\MAGNESIUM HYDROXIDE
     Indication: DYSPEPSIA
  3. ZANTAC [Suspect]
     Active Substance: RANITIDINE HYDROCHLORIDE
     Indication: GASTROOESOPHAGEAL REFLUX DISEASE
     Dosage: UNK UNK, UNK
     Route: 065
  4. MAALOX [ALGELDRATE;MAGNESIUM HYDROXIDE] [Suspect]
     Active Substance: ALGELDRATE\MAGNESIUM HYDROXIDE
     Indication: GASTROOESOPHAGEAL REFLUX DISEASE
     Dosage: UNK UNK, UNK
     Route: 065
  5. MAALOX [ALGELDRATE;MAGNESIUM HYDROXIDE] [Suspect]
     Active Substance: ALGELDRATE\MAGNESIUM HYDROXIDE
     Indication: NAUSEA
  6. ZANTAC [Suspect]
     Active Substance: RANITIDINE HYDROCHLORIDE
     Indication: NAUSEA

REACTIONS (1)
  - Exposure during pregnancy [Unknown]
